FAERS Safety Report 18265698 (Version 2)
Quarter: 2020Q4

REPORT INFORMATION
  Report Type: Spontaneous
  Country: US (occurrence: US)
  Receive Date: 20200915
  Receipt Date: 20201012
  Transmission Date: 20210113
  Serious: No
  Sender: FDA-Public Use
  Company Number: US-GLAXOSMITHKLINE-US2020AMR159546

PATIENT
  Age: 31 Year
  Sex: Male
  Weight: 95.24 kg

DRUGS (2)
  1. BUPROPION. [Suspect]
     Active Substance: BUPROPION
     Indication: DEPRESSION
     Dosage: 300 MG, 1D
     Route: 048
     Dates: start: 201405
  2. LAMICTAL [Concomitant]
     Active Substance: LAMOTRIGINE
     Indication: BIPOLAR DISORDER
     Dosage: UNK
     Route: 065

REACTIONS (7)
  - Pollakiuria [Recovered/Resolved]
  - Insomnia [Recovered/Resolved]
  - Blepharospasm [Not Recovered/Not Resolved]
  - Product substitution issue [Not Recovered/Not Resolved]
  - Panic attack [Recovered/Resolved]
  - Muscle twitching [Not Recovered/Not Resolved]
  - Drug ineffective [Unknown]

NARRATIVE: CASE EVENT DATE: 201405
